FAERS Safety Report 13950641 (Version 2)
Quarter: 2017Q4

REPORT INFORMATION
  Report Type: Spontaneous
  Country: CH (occurrence: CH)
  Receive Date: 20170908
  Receipt Date: 20171005
  Transmission Date: 20180320
  Serious: Yes (Other)
  Sender: FDA-Public Use
  Company Number: CH-ARIAD-2017CH008665

PATIENT

DRUGS (3)
  1. TEMOZOLOMIDE. [Concomitant]
     Active Substance: TEMOZOLOMIDE
     Dosage: UNK
  2. ICLUSIG [Suspect]
     Active Substance: PONATINIB
     Indication: ATYPICAL TERATOID/RHABDOID TUMOUR OF CNS
     Dosage: 15 MG, QOD
     Route: 048
     Dates: start: 20170721, end: 20170823
  3. TEMOZOLOMIDE. [Concomitant]
     Active Substance: TEMOZOLOMIDE
     Indication: ATYPICAL TERATOID/RHABDOID TUMOUR OF CNS
     Dosage: UNK

REACTIONS (5)
  - Condition aggravated [Unknown]
  - Facial paresis [Unknown]
  - Off label use [Unknown]
  - Neoplasm progression [Unknown]
  - Drug administered to patient of inappropriate age [Unknown]
